FAERS Safety Report 9069860 (Version 2)
Quarter: 2013Q1

REPORT INFORMATION
  Report Type: Spontaneous
  Country: FR (occurrence: FR)
  Receive Date: 20130131
  Receipt Date: 20130221
  Transmission Date: 20140127
  Serious: Yes (Other)
  Sender: FDA-Public Use
  Company Number: FR-BAUSCH-BL-2013-000329

PATIENT
  Age: 79 Year
  Sex: Female

DRUGS (2)
  1. YELLOX [Suspect]
     Indication: POSTOPERATIVE CARE
     Route: 047
     Dates: start: 20120924, end: 20121010
  2. TOBRADEX [Suspect]
     Indication: POSTOPERATIVE CARE
     Route: 047
     Dates: start: 20120924, end: 20121009

REACTIONS (3)
  - Anterior chamber inflammation [Recovered/Resolved]
  - Iris adhesions [Recovered/Resolved]
  - Off label use [Recovered/Resolved]
